FAERS Safety Report 6207966-8 (Version None)
Quarter: 2009Q2

REPORT INFORMATION
  Report Type: 
  Country: None (occurrence: None)
  Receive Date: 20090529
  Receipt Date: 20090105
  Transmission Date: 20091009
  Serious: No
  Sender: FDA-Public Use
  Company Number: A0762331A

PATIENT
  Age: 51 Year
  Sex: Male

DRUGS (4)
  1. VENTOLIN [Suspect]
     Route: 055
  2. SINGULAIR [Concomitant]
  3. PULMICORT-100 [Concomitant]
  4. SEREVENT [Concomitant]

REACTIONS (2)
  - DRUG INEFFECTIVE [None]
  - PRODUCT QUALITY ISSUE [None]
